FAERS Safety Report 8884939 (Version 1)
Quarter: 2012Q4

REPORT INFORMATION
  Report Type: 
  Country: JP (occurrence: JP)
  Receive Date: 20121105
  Receipt Date: 20121105
  Transmission Date: 20130627
  Serious: Yes (Other)
  Sender: FDA-Public Use
  Company Number: JP-009507513-2012SP024193

PATIENT
  Age: 50 Year
  Sex: Male
  Weight: 67 kg

DRUGS (26)
  1. REBETOL [Suspect]
     Indication: HEPATITIS C
     Dosage: 800 mg, QD
     Route: 048
     Dates: start: 20120117
  2. REBETOL [Suspect]
     Dosage: 600 mg, QD
     Route: 048
     Dates: start: 20120327, end: 20120409
  3. REBETOL [Suspect]
     Dosage: 200 mg, QD
     Route: 048
     Dates: start: 20120410, end: 20120424
  4. REBETOL [Suspect]
     Dosage: 200 mg on alternate days
     Route: 048
     Dates: start: 20120501, end: 20120507
  5. REBETOL [Suspect]
     Dosage: 200 mg, qd
     Route: 048
     Dates: start: 20120508, end: 20120514
  6. REBETOL [Suspect]
     Dosage: 400 mg, qd
     Route: 048
     Dates: start: 20120515, end: 20120521
  7. REBETOL [Suspect]
     Dosage: 600 mg, qd
     Route: 048
     Dates: start: 20120522, end: 20120702
  8. PEGINTRON [Suspect]
     Indication: HEPATITIS C
     Dosage: 1.5Microgram per kilogram, QW
     Route: 058
     Dates: start: 20120117, end: 20120221
  9. PEGINTRON [Suspect]
     Dosage: 1.3 Microgram per kilogram, QW
     Route: 058
     Dates: start: 20120228, end: 20120306
  10. PEGINTRON [Suspect]
     Dosage: 1.5 Microgram per kilogram, QW
     Route: 058
     Dates: start: 20120313, end: 20120410
  11. PEGINTRON [Suspect]
     Dosage: 0.75 Microgram per kilogram,QW
     Route: 058
     Dates: start: 20120417, end: 20120417
  12. PEGINTRON [Suspect]
     Dosage: 0.45 Microgram per kilogram, QW
     Route: 058
     Dates: start: 20120424, end: 20120424
  13. PEGINTRON [Suspect]
     Dosage: 0.75 Microgram per kilogram,QW
     Route: 058
     Dates: start: 20120501, end: 20120501
  14. PEGINTRON [Suspect]
     Dosage: 1.3 Microgram per kilogram,QW
     Route: 058
     Dates: start: 20120508, end: 20120508
  15. PEGINTRON [Suspect]
     Dosage: 1.4 Microgram per kilogram,QW
     Route: 058
     Dates: start: 20120515, end: 20120515
  16. PEGINTRON [Suspect]
     Dosage: 1.5 Microgram per kilogram,QW
     Route: 058
     Dates: start: 20120522, end: 20120626
  17. TELAVIC [Suspect]
     Indication: HEPATITIS C
     Dosage: 2250 mg, QD
     Route: 048
     Dates: start: 20120117, end: 20120119
  18. TELAVIC [Suspect]
     Dosage: 1500 mg, QD
     Route: 048
     Dates: start: 20120120, end: 20120120
  19. TELAVIC [Suspect]
     Dosage: 2250 mg, QD
     Route: 048
     Dates: start: 20120121, end: 20120409
  20. FAMOTIDINE [Concomitant]
     Indication: PROPHYLAXIS
     Dosage: 20 mg, QD
     Route: 048
     Dates: start: 20120117, end: 20120206
  21. CONFATANIN [Concomitant]
     Indication: PYREXIA
     Dosage: UNK UNK, PRN
     Route: 048
     Dates: start: 20120117
  22. CONFATANIN [Concomitant]
     Dosage: UNK
     Dates: start: 20120214
  23. DERMOVATE [Concomitant]
     Indication: RASH
     Dosage: 0.05 % DERMOVATE OINTMENT
     Route: 065
     Dates: start: 20120120, end: 20120125
  24. FAMOTIDINE [Concomitant]
     Indication: ABDOMINAL DISTENSION
     Dosage: 40 mg, QD
     Route: 065
     Dates: start: 20120207
  25. XYZAL [Concomitant]
     Indication: RASH
     Dosage: 5 mg, QD
     Route: 048
     Dates: start: 20120313
  26. DERMOVATE [Concomitant]
     Indication: PRURITUS
     Dosage: 0.05 % DERMOVATE OINTMENT 5 G/TUBE
     Route: 065
     Dates: start: 20120410

REACTIONS (2)
  - Hyperuricaemia [Recovered/Resolved]
  - Haemoglobin decreased [Not Recovered/Not Resolved]
